FAERS Safety Report 11340910 (Version 1)
Quarter: 2015Q3

REPORT INFORMATION
  Report Type: Spontaneous
  Country: US (occurrence: None)
  Receive Date: 20150803
  Receipt Date: 20150803
  Transmission Date: 20151125
  Serious: Yes (Other)
  Sender: FDA-Public Use
  Company Number: None

PATIENT

DRUGS (2)
  1. MIRALAX [Suspect]
     Active Substance: POLYETHYLENE GLYCOL 3350
     Indication: CONSTIPATION
  2. THICK-IT [Suspect]
     Active Substance: DIETARY SUPPLEMENT
     Indication: DYSPHAGIA

REACTIONS (1)
  - Liquid product physical issue [None]

NARRATIVE: CASE EVENT DATE: 20150730
